FAERS Safety Report 8998916 (Version 1)
Quarter: 2013Q1

REPORT INFORMATION
  Report Type: Spontaneous
  Country: JP (occurrence: JP)
  Receive Date: 20130103
  Receipt Date: 20130103
  Transmission Date: 20140127
  Serious: Yes (Other)
  Sender: FDA-Public Use
  Company Number: JP-ACCORD-015814

PATIENT
  Age: 80 Year
  Sex: Male

DRUGS (2)
  1. ETOPOSIDE [Suspect]
     Indication: PROSTATE CANCER
     Dosage: 3 CYCLES, TREATMENT WAS 28 DAYS APART
  2. CISPLATIN [Suspect]
     Indication: PROSTATE CANCER
     Dosage: 3 CYCLES, TREATMENT WERE 28 DAYS APART

REACTIONS (8)
  - Leukopenia [Unknown]
  - Anaemia [Unknown]
  - Hypocalcaemia [Unknown]
  - Hyponatraemia [Unknown]
  - Blood creatinine increased [Unknown]
  - Decreased appetite [Unknown]
  - General physical health deterioration [Unknown]
  - Off label use [Unknown]
